FAERS Safety Report 9207249 (Version 2)
Quarter: 2014Q2

REPORT INFORMATION
  Report Type: Spontaneous
  Country: US (occurrence: US)
  Receive Date: 20130403
  Receipt Date: 20140407
  Transmission Date: 20141212
  Serious: Yes (Other)
  Sender: FDA-Public Use
  Company Number: US-BAYER-2013-039707

PATIENT
  Age: 17 Year
  Sex: Female

DRUGS (4)
  1. YAZ [Suspect]
     Dosage: UNK
     Dates: start: 200705
  2. DICYCLOMINE [Concomitant]
     Dosage: 10 MG, TAKE 1 CAPSULE
     Route: 048
     Dates: start: 20080215
  3. HYOSCYAMINE [Concomitant]
     Dosage: 0.125 MG, TAKE 1 TO 2 TABLETS
     Route: 048
     Dates: start: 20080219
  4. PROTONIX [Concomitant]

REACTIONS (9)
  - Cholelithiasis [None]
  - Cholecystitis chronic [None]
  - Biliary dyskinesia [None]
  - Injury [None]
  - Pain [None]
  - Emotional distress [None]
  - Anxiety [None]
  - Pain [None]
  - Fear [None]
